FAERS Safety Report 21279022 (Version 1)
Quarter: 2022Q3

REPORT INFORMATION
  Report Type: Report from Study
  Country: US (occurrence: US)
  Receive Date: 20220901
  Receipt Date: 20220901
  Transmission Date: 20221027
  Serious: Yes (Death, Other)
  Sender: FDA-Public Use
  Company Number: US-GILEAD-2022-0595827

PATIENT
  Age: 18 Year
  Sex: Female

DRUGS (10)
  1. AZTREONAM LYSINE [Suspect]
     Active Substance: AZTREONAM LYSINE
     Indication: Tracheitis
     Dosage: UNK UNK, TID
     Route: 055
     Dates: start: 20220119, end: 202208
  2. AZITHROMYCIN [Concomitant]
     Active Substance: AZITHROMYCIN
  3. BUDESONIDE [Concomitant]
     Active Substance: BUDESONIDE
  4. FLUTICASONE [Concomitant]
     Active Substance: FLUTICASONE
  5. IPRATROPIUM [Concomitant]
     Active Substance: IPRATROPIUM
  6. MONTELUKAST [Concomitant]
     Active Substance: MONTELUKAST SODIUM
  7. PULMOZYME [Concomitant]
     Active Substance: DORNASE ALFA
  8. SODIUM CHLORIDE [Concomitant]
     Active Substance: SODIUM CHLORIDE
  9. SYMBICORT [Concomitant]
     Active Substance: BUDESONIDE\FORMOTEROL FUMARATE DIHYDRATE
  10. TOBRAMYCIN [Concomitant]
     Active Substance: TOBRAMYCIN

REACTIONS (2)
  - Death [Fatal]
  - Off label use [Unknown]

NARRATIVE: CASE EVENT DATE: 20220810
